FAERS Safety Report 16931276 (Version 1)
Quarter: 2019Q4

REPORT INFORMATION
  Report Type: Spontaneous
  Country: GB (occurrence: GB)
  Receive Date: 20191017
  Receipt Date: 20191017
  Transmission Date: 20200122
  Serious: Yes (Disabling)
  Sender: FDA-Public Use
  Company Number: GB-MYLANLABS-2019M1097782

PATIENT
  Age: 28 Year
  Sex: Male

DRUGS (1)
  1. CIPROFLOXACIN. [Suspect]
     Active Substance: CIPROFLOXACIN
     Indication: ORCHITIS
     Dosage: 1000 MILLIGRAM, QD,FOR 2 WEEKS
     Route: 048
     Dates: start: 20190731, end: 20190802

REACTIONS (2)
  - Tendonitis [Unknown]
  - Tendon disorder [Unknown]

NARRATIVE: CASE EVENT DATE: 20190802
